FAERS Safety Report 4589071-X (Version None)
Quarter: 2005Q1

REPORT INFORMATION
  Report Type: 
  Country: None (occurrence: None)
  Receive Date: 20050222
  Receipt Date: 20050110
  Transmission Date: 20050727
  Serious: Yes (Disabling)
  Sender: FDA-Public Use
  Company Number: US-MERCK-0501USA00772

PATIENT
  Age: 52 Year
  Sex: Male
  Weight: 159 kg

DRUGS (4)
  1. VIOXX [Suspect]
     Route: 048
     Dates: start: 20000621
  2. VIOXX [Suspect]
     Route: 048
     Dates: end: 20041001
  3. NEURONTIN [Concomitant]
     Route: 065
  4. AMITRIPTYLINE HYDROCHLORIDE [Concomitant]
     Route: 065

REACTIONS (11)
  - ADVERSE EVENT [None]
  - ASTHENIA [None]
  - ATHEROSCLEROSIS [None]
  - COMPLEX REGIONAL PAIN SYNDROME [None]
  - CORONARY ARTERY DISEASE [None]
  - DILATATION VENTRICULAR [None]
  - DYSPNOEA [None]
  - MYOCARDIAL ISCHAEMIA [None]
  - SENSATION OF HEAVINESS [None]
  - VENTRICULAR DYSFUNCTION [None]
  - VENTRICULAR HYPERTROPHY [None]
